FAERS Safety Report 8424316-7 (Version None)
Quarter: 2012Q2

REPORT INFORMATION
  Report Type: 
  Country: None (occurrence: None)
  Receive Date: 20120608
  Receipt Date: 20111123
  Transmission Date: 20120825
  Serious: No
  Sender: FDA-Public Use
  Company Number: US-ASTRAZENECA-2011SE63303

PATIENT
  Age: 55 Year
  Sex: Female

DRUGS (2)
  1. ACCOLATE [Suspect]
     Route: 048
  2. PULMICORT FLEXHALER [Suspect]
     Route: 055

REACTIONS (3)
  - RESPIRATORY DISORDER [None]
  - DYSPNOEA [None]
  - DRUG DOSE OMISSION [None]
